FAERS Safety Report 5166214-0 (Version None)
Quarter: 2006Q4

REPORT INFORMATION
  Report Type: 
  Country: None (occurrence: None)
  Receive Date: 20060830
  Receipt Date: 20060417
  Transmission Date: 20070319
  Serious: No
  Sender: FDA-Public Use
  Company Number: 224194

PATIENT
  Sex: Female

DRUGS (5)
  1. XOLAIR [Suspect]
     Indication: ASTHMA
     Dosage: SUBCUTANEOUS
     Route: 058
     Dates: start: 20040618, end: 20050526
  2. XOLAIR [Suspect]
     Indication: ASTHMA
     Dosage: SUBCUTANEOUS
     Route: 058
     Dates: start: 20051101
  3. LORATADINE [Concomitant]
  4. ADVAIR DISKUS 100/50 [Concomitant]
  5. PREDNISONE TAB [Concomitant]

REACTIONS (2)
  - COUGH [None]
  - PRURITUS [None]
